FAERS Safety Report 6260926-3 (Version None)
Quarter: 2009Q3

REPORT INFORMATION
  Report Type: 
  Country: None (occurrence: None)
  Receive Date: 20090709
  Receipt Date: 20071017
  Transmission Date: 20100115
  Serious: Yes (Other)
  Sender: FDA-Public Use
  Company Number: US-ASTRAZENECA-2007UW03878

PATIENT
  Age: 526 Month
  Sex: Male
  Weight: 124.3 kg

DRUGS (23)
  1. SEROQUEL [Suspect]
     Indication: BIPOLAR DISORDER
     Route: 048
     Dates: start: 20000601
  2. SEROQUEL [Suspect]
     Indication: DEPRESSION
     Route: 048
     Dates: start: 20000601
  3. SEROQUEL [Suspect]
     Indication: SCHIZOPHRENIA
     Route: 048
     Dates: start: 20000601
  4. SEROQUEL [Suspect]
     Indication: SLEEP DISORDER
     Route: 048
     Dates: start: 20000601
  5. SEROQUEL [Suspect]
     Indication: HALLUCINATION, AUDITORY
     Route: 048
     Dates: start: 20000601
  6. SEROQUEL [Suspect]
     Route: 048
     Dates: start: 20001018
  7. SEROQUEL [Suspect]
     Route: 048
     Dates: start: 20001018
  8. SEROQUEL [Suspect]
     Route: 048
     Dates: start: 20001018
  9. SEROQUEL [Suspect]
     Route: 048
     Dates: start: 20001018
  10. SEROQUEL [Suspect]
     Route: 048
     Dates: start: 20001018
  11. RISPERDAL [Concomitant]
     Route: 048
     Dates: start: 20050528, end: 20070425
  12. RISPERDAL [Concomitant]
     Route: 048
     Dates: start: 20061115, end: 20071108
  13. RISPERDAL [Concomitant]
     Route: 048
     Dates: start: 20070308, end: 20070804
  14. ACARBOSE [Concomitant]
     Dosage: 25-50 MG THREE TIMES A DAY
     Route: 048
     Dates: start: 20070215
  15. ASPIRIN [Concomitant]
     Route: 048
     Dates: start: 20070215
  16. BENZTROPINE MESYLATE [Concomitant]
     Route: 048
     Dates: start: 20070215
  17. CARBAMAZEPINE [Concomitant]
     Route: 048
     Dates: start: 20070215
  18. DOCUSATE [Concomitant]
     Route: 048
     Dates: start: 20070215
  19. GLYBURIDE [Concomitant]
     Indication: DIABETES MELLITUS
     Dosage: 5 MG, 10MG
     Route: 048
     Dates: start: 20050215
  20. GABAPENTIN [Concomitant]
     Indication: NEUROPATHY PERIPHERAL
     Route: 048
     Dates: start: 20070215
  21. LISINOPRIL [Concomitant]
     Route: 048
     Dates: start: 20070215
  22. TRAZODONE HCL [Concomitant]
     Route: 048
     Dates: start: 20070215
  23. METFORMIN HCL [Concomitant]
     Dates: start: 20070215

REACTIONS (5)
  - DIABETES MELLITUS [None]
  - DIABETES MELLITUS INADEQUATE CONTROL [None]
  - DIABETIC NEUROPATHY [None]
  - DIABETIC RETINOPATHY [None]
  - TYPE 2 DIABETES MELLITUS [None]
